FAERS Safety Report 14191405 (Version 2)
Quarter: 2017Q4

REPORT INFORMATION
  Report Type: Spontaneous
  Country: US (occurrence: US)
  Receive Date: 20171115
  Receipt Date: 20171205
  Transmission Date: 20180321
  Serious: Yes (Other)
  Sender: FDA-Public Use
  Company Number: US-BAYER-2017-215421

PATIENT
  Age: 64 Year
  Sex: Female

DRUGS (2)
  1. MENOSTAR [Suspect]
     Active Substance: ESTRADIOL
     Indication: HOT FLUSH
     Dosage: UNK
     Route: 062
     Dates: start: 20171020
  2. MEDROXYPROGESTERONE [Concomitant]
     Active Substance: MEDROXYPROGESTERONE
     Dosage: 2.5 MG, UNK

REACTIONS (9)
  - Incorrect drug administration duration [None]
  - Wrong technique in product usage process [None]
  - Product quality issue [None]
  - Inappropriate prescribing [None]
  - Uterine leiomyoma [Recovered/Resolved]
  - Hot flush [None]
  - Product adhesion issue [None]
  - Postmenopausal haemorrhage [None]
  - Application site irritation [None]

NARRATIVE: CASE EVENT DATE: 20171023
